FAERS Safety Report 20650854 (Version 2)
Quarter: 2022Q2

REPORT INFORMATION
  Report Type: Spontaneous
  Country: JP (occurrence: JP)
  Receive Date: 20220329
  Receipt Date: 20220407
  Transmission Date: 20220721
  Serious: Yes (Hospitalization)
  Sender: FDA-Public Use
  Company Number: JP-TEVA-2022-JP-2021503

PATIENT
  Age: 7 Decade
  Sex: Female

DRUGS (27)
  1. BROTIZOLAM [Suspect]
     Active Substance: BROTIZOLAM
     Indication: Schizophrenia
     Dosage: .25 MILLIGRAM DAILY;
     Route: 065
  2. DIAZEPAM [Suspect]
     Active Substance: DIAZEPAM
     Indication: Insomnia
     Dosage: 5 MILLIGRAM DAILY;
     Route: 065
  3. OLANZAPINE [Suspect]
     Active Substance: OLANZAPINE
     Indication: Schizophrenia
     Dosage: 20 MILLIGRAM DAILY;
     Route: 065
  4. QUETIAPINE [Suspect]
     Active Substance: QUETIAPINE
     Indication: Schizophrenia
     Dosage: 600 MILLIGRAM DAILY;
     Route: 065
  5. QUETIAPINE [Suspect]
     Active Substance: QUETIAPINE
     Dosage: 12.5 MILLIGRAM DAILY;
     Route: 065
  6. VORICONAZOLE [Suspect]
     Active Substance: VORICONAZOLE
     Indication: Pneumonia fungal
     Dosage: 800 MILLIGRAM DAILY;
     Route: 065
  7. VORICONAZOLE [Suspect]
     Active Substance: VORICONAZOLE
     Dosage: 600 MILLIGRAM DAILY;
     Route: 065
  8. FLUNITRAZEPAM [Suspect]
     Active Substance: FLUNITRAZEPAM
     Indication: Schizophrenia
     Dosage: 4 MILLIGRAM DAILY;
     Route: 065
  9. FLUNITRAZEPAM [Suspect]
     Active Substance: FLUNITRAZEPAM
     Indication: Insomnia
     Dosage: 5 MILLIGRAM DAILY;
     Route: 065
  10. BROMAZEPAM [Suspect]
     Active Substance: BROMAZEPAM
     Indication: Schizophrenia
     Dosage: 15 MILLIGRAM DAILY;
     Route: 065
  11. DANTROLENE [Suspect]
     Active Substance: DANTROLENE
     Indication: Neuroleptic malignant syndrome
     Dosage: 40 MILLIGRAM DAILY;
     Route: 065
  12. DANTROLENE [Suspect]
     Active Substance: DANTROLENE
     Dosage: 60 MILLIGRAM DAILY;
     Route: 065
  13. DANTROLENE [Suspect]
     Active Substance: DANTROLENE
     Dosage: 100 MILLIGRAM DAILY;
     Route: 065
  14. DANTROLENE [Suspect]
     Active Substance: DANTROLENE
     Dosage: DOSE REDUCED
     Route: 065
  15. BROMOCRIPTINE [Suspect]
     Active Substance: BROMOCRIPTINE
     Indication: Neuroleptic malignant syndrome
     Dosage: 7.5 MILLIGRAM DAILY;
     Route: 065
  16. BROMOCRIPTINE [Suspect]
     Active Substance: BROMOCRIPTINE
     Dosage: 17.5 MILLIGRAM DAILY;
     Route: 065
  17. BROMOCRIPTINE [Suspect]
     Active Substance: BROMOCRIPTINE
     Dosage: DOSE REDUCED
     Route: 065
  18. AMANTADINE [Suspect]
     Active Substance: AMANTADINE
     Indication: Neuroleptic malignant syndrome
     Dosage: 300 MILLIGRAM DAILY;
     Route: 065
  19. AMANTADINE [Suspect]
     Active Substance: AMANTADINE
     Dosage: DOSE WAS REDUCED
     Route: 065
  20. LEVODOPA [Suspect]
     Active Substance: LEVODOPA
     Indication: Neuroleptic malignant syndrome
     Dosage: 25 MILLIGRAM DAILY;
     Route: 065
  21. LEVODOPA [Suspect]
     Active Substance: LEVODOPA
     Dosage: DOSE WAS REDUCED
     Route: 065
  22. MICAFUNGIN [Suspect]
     Active Substance: MICAFUNGIN
     Indication: Pneumonia fungal
     Route: 065
  23. MICAFUNGIN [Suspect]
     Active Substance: MICAFUNGIN
     Dosage: 150 MILLIGRAM DAILY;
     Route: 065
  24. Powdered Rhubarb [Concomitant]
     Indication: Product used for unknown indication
     Dosage: 9 GRAM DAILY;
     Route: 065
  25. MAGNESIUM OXIDE [Concomitant]
     Active Substance: MAGNESIUM OXIDE
     Indication: Product used for unknown indication
     Dosage: 9 GRAM DAILY;
     Route: 065
  26. REBAMIPIDE [Concomitant]
     Active Substance: REBAMIPIDE
     Indication: Product used for unknown indication
     Dosage: 300 MILLIGRAM DAILY;
     Route: 065
  27. PROPOFOL [Concomitant]
     Active Substance: PROPOFOL
     Indication: Sedation
     Route: 042

REACTIONS (2)
  - Malignant catatonia [Recovering/Resolving]
  - Drug ineffective [Unknown]
